FAERS Safety Report 8814681 (Version 1)
Quarter: 2012Q4

REPORT INFORMATION
  Report Type: Spontaneous
  Country: FR (occurrence: None)
  Receive Date: 20120926
  Receipt Date: 20120926
  Transmission Date: 20130627
  Serious: Yes (Hospitalization)
  Sender: FDA-Public Use
  Company Number: DSA_59803_2012

PATIENT
  Age: 80 Year
  Sex: Male

DRUGS (4)
  1. FLAGYL [Suspect]
     Indication: ESCHERICHIA  INFECTION
     Dosage: (DF)
     Dates: start: 20110225, end: 20110316
  2. AMOXICILLIN (AMOXICILLIN) [Suspect]
     Indication: ESCHERICHIA  INFECTION
     Route: 042
     Dates: start: 20110307, end: 20110316
  3. AUGMENTIN /00852501/ [Concomitant]
  4. ROCEPHINE [Concomitant]

REACTIONS (7)
  - Neutropenia [None]
  - Oedema peripheral [None]
  - Drug intolerance [None]
  - Pyrexia [None]
  - Hepatocellular injury [None]
  - No therapeutic response [None]
  - Agranulocytosis [None]
